FAERS Safety Report 6912299-8 (Version None)
Quarter: 2010Q3

REPORT INFORMATION
  Report Type: 
  Country: None (occurrence: None)
  Receive Date: 20100806
  Receipt Date: 20080219
  Transmission Date: 20110219
  Serious: No
  Sender: FDA-Public Use
  Company Number: US-PFIZER INC-2008017361

PATIENT
  Sex: Female
  Weight: 68.2 kg

DRUGS (2)
  1. LOPID [Suspect]
     Indication: BLOOD TRIGLYCERIDES INCREASED
     Route: 048
     Dates: start: 20080209, end: 20080216
  2. LIPITOR [Concomitant]

REACTIONS (2)
  - PRURITUS [None]
  - RASH [None]
